FAERS Safety Report 15374474 (Version 1)
Quarter: 2018Q3

REPORT INFORMATION
  Report Type: Spontaneous
  Country: US (occurrence: US)
  Receive Date: 20180905
  Receipt Date: 20180905
  Transmission Date: 20181010
  Serious: Yes (Other)
  Sender: FDA-Public Use
  Company Number: None

PATIENT
  Age: 68 Year
  Sex: Male

DRUGS (1)
  1. LAMOTRIGINE. [Suspect]
     Active Substance: LAMOTRIGINE
     Dates: start: 20180701, end: 20180714

REACTIONS (5)
  - Hyperhidrosis [None]
  - Obsessive thoughts [None]
  - Insomnia [None]
  - Suicidal ideation [None]
  - Abnormal dreams [None]

NARRATIVE: CASE EVENT DATE: 20180729
